FAERS Safety Report 5775000-X (Version None)
Quarter: 2008Q2

REPORT INFORMATION
  Report Type: 
  Country: None (occurrence: None)
  Receive Date: 20080617
  Receipt Date: 20080609
  Transmission Date: 20081010
  Serious: Yes (Other)
  Sender: FDA-Public Use
  Company Number: PHEH2008US05087

PATIENT
  Sex: Male

DRUGS (8)
  1. TEKTURNA [Suspect]
     Indication: HYPERTENSION
     Dosage: 150 MG, UNK
     Dates: start: 20080101, end: 20080201
  2. TEKTURNA [Suspect]
     Dosage: 300 MG, UNK
     Dates: start: 20080201
  3. COZAAR [Concomitant]
     Dosage: 100 MG, QD
     Dates: start: 20070419
  4. FELODIPINE [Concomitant]
     Dosage: 10 MG, QD
     Dates: start: 20080419
  5. CLONIDINE [Concomitant]
     Dosage: 0.2 MG, BID
  6. METOPROLOL [Concomitant]
     Dosage: 75 MG, UNK
  7. PHOSLO [Concomitant]
     Dosage: 667 MG, 2 TABS TID
  8. CATAPRES-TTS-3 [Concomitant]
     Dosage: 0.3 MG, UNK
     Route: 062
     Dates: end: 20070503

REACTIONS (5)
  - BLOOD CREATININE INCREASED [None]
  - CROHN'S DISEASE [None]
  - DIARRHOEA [None]
  - MUCOUS STOOLS [None]
  - NAUSEA [None]
